FAERS Safety Report 22517061 (Version 1)
Quarter: 2023Q2

REPORT INFORMATION
  Report Type: Spontaneous
  Country: RO (occurrence: RO)
  Receive Date: 20230603
  Receipt Date: 20230603
  Transmission Date: 20230722
  Serious: Yes (Other)
  Sender: FDA-Public Use
  Company Number: RO-AMGEN-ROUSP2023085196

PATIENT
  Age: 61 Year
  Sex: Male

DRUGS (7)
  1. ACYCLOVIR [Suspect]
     Active Substance: ACYCLOVIR
     Indication: Product used for unknown indication
     Dosage: UNK
     Route: 065
     Dates: start: 20211118
  2. ELIQUIS [Suspect]
     Active Substance: APIXABAN
     Indication: Plasma cell myeloma
     Dosage: UNK
     Route: 065
     Dates: start: 20211118
  3. DEXAMETHASONE [Suspect]
     Active Substance: DEXAMETHASONE
     Indication: Plasma cell myeloma
     Dosage: UNK
     Route: 065
     Dates: start: 20211118
  4. BISEPTOL [Suspect]
     Active Substance: SULFAMETHOXAZOLE\TRIMETHOPRIM
     Indication: Product used for unknown indication
     Dosage: UNK
     Route: 065
     Dates: start: 20211118
  5. LENALIDOMIDE [Suspect]
     Active Substance: LENALIDOMIDE
     Indication: Plasma cell myeloma
     Dosage: UNK
     Route: 065
     Dates: start: 20211118
  6. KYPROLIS [Suspect]
     Active Substance: CARFILZOMIB
     Indication: Plasma cell myeloma
     Dosage: UNK
     Route: 065
     Dates: start: 20211118, end: 20220309
  7. NITROGLYCERIN [Concomitant]
     Active Substance: NITROGLYCERIN
     Indication: Product used for unknown indication
     Dosage: UNK
     Route: 065

REACTIONS (17)
  - Acute kidney injury [Unknown]
  - Anal ulcer [Unknown]
  - Cardiac failure [Unknown]
  - Renal failure [Unknown]
  - Rectal haemorrhage [Unknown]
  - Pancytopenia [Unknown]
  - Tremor [Unknown]
  - Epistaxis [Unknown]
  - Insomnia [Unknown]
  - Generalised oedema [Unknown]
  - Haemorrhoids [Unknown]
  - Purpura [Unknown]
  - Hypervolaemia [Unknown]
  - Inflammation [Unknown]
  - Gastritis [Unknown]
  - Sinusitis [Unknown]
  - Diverticulum [Unknown]

NARRATIVE: CASE EVENT DATE: 20220221
